FAERS Safety Report 11099355 (Version 2)
Quarter: 2015Q4

REPORT INFORMATION
  Report Type: Spontaneous
  Country: US (occurrence: US)
  Receive Date: 20150508
  Receipt Date: 20151009
  Transmission Date: 20160304
  Serious: Yes (Other)
  Sender: FDA-Public Use
  Company Number: US-JNJFOC-20150423314

PATIENT
  Age: 58 Year
  Sex: Female
  Weight: 120.2 kg

DRUGS (13)
  1. CLOBETASOL [Concomitant]
     Active Substance: CLOBETASOL
     Indication: RASH
     Dosage: APPLY TO RASH AREAS FOR 4 WEEKS BID, AVOID FACE AMPHITS AND GROIN
     Route: 061
     Dates: start: 20140219
  2. HYDROCORTISONE VALERATE. [Concomitant]
     Active Substance: HYDROCORTISONE VALERATE
     Dosage: APPLY TO FACE TWO TIMES A DAY.
     Route: 061
     Dates: start: 20140108
  3. FLUOROURACIL. [Concomitant]
     Active Substance: FLUOROURACIL
     Dosage: APPLY TO AFFECTED AREAS ON FACE TWO TIMES A DAY
     Route: 061
     Dates: start: 20150202
  4. STELARA [Suspect]
     Active Substance: USTEKINUMAB
     Indication: PSORIASIS
     Dosage: TOTAL APPROXIMATELY 4 DOSES PATIENT RECEIVED.
     Route: 058
     Dates: start: 20140527, end: 20150202
  5. ALLEGRA [Concomitant]
     Active Substance: FEXOFENADINE HYDROCHLORIDE
     Route: 048
  6. STELARA [Suspect]
     Active Substance: USTEKINUMAB
     Indication: PSORIASIS
     Dosage: TOTAL APPROXIMATELY 4 DOSES PATIENT RECEIVED.
     Route: 058
     Dates: end: 201504
  7. OMEPRAZOLE. [Concomitant]
     Active Substance: OMEPRAZOLE
     Dosage: BEFORE MEAL
     Route: 048
  8. LAMICTAL [Concomitant]
     Active Substance: LAMOTRIGINE
     Route: 048
  9. DIOVAN [Concomitant]
     Active Substance: VALSARTAN
     Route: 048
     Dates: start: 20150518
  10. PAXIL [Concomitant]
     Active Substance: PAROXETINE HYDROCHLORIDE
     Route: 048
     Dates: start: 20150115
  11. LIPITOR [Concomitant]
     Active Substance: ATORVASTATIN CALCIUM
     Route: 048
     Dates: start: 20150601
  12. DESOWEN [Concomitant]
     Active Substance: DESONIDE
     Indication: PRURITUS
     Dosage: APPLY TO ITCHY AREAS ON TEMPLES TWO TIMES IN A DAY FOR ITCHING
     Route: 061
     Dates: start: 20141002
  13. FLUOCINONIDE 0.05% [Concomitant]
     Active Substance: FLUOCINONIDE
     Route: 061
     Dates: start: 20150406

REACTIONS (1)
  - Metastatic malignant melanoma [Recovered/Resolved]

NARRATIVE: CASE EVENT DATE: 20150413
